FAERS Safety Report 13658524 (Version 6)
Quarter: 2020Q1

REPORT INFORMATION
  Report Type: Spontaneous
  Country: US (occurrence: US)
  Receive Date: 20170616
  Receipt Date: 20200120
  Transmission Date: 20200409
  Serious: Yes (Hospitalization, Other)
  Sender: FDA-Public Use
  Company Number: US-PFIZER INC-2017259281

PATIENT
  Age: 46 Year
  Sex: Female

DRUGS (1)
  1. IBRANCE [Suspect]
     Active Substance: PALBOCICLIB
     Dosage: 125 MG, ONCE DAILY FOR 21 DAYS ON AND 7 DAYS OFF
     Route: 048
     Dates: start: 20170519

REACTIONS (15)
  - Dizziness [Unknown]
  - Pneumonia [Unknown]
  - White blood cell count decreased [Unknown]
  - Gait disturbance [Unknown]
  - Infection [Unknown]
  - Vomiting [Unknown]
  - Rash [Recovered/Resolved]
  - Blood pressure decreased [Unknown]
  - Headache [Not Recovered/Not Resolved]
  - Nausea [Unknown]
  - Seizure [Unknown]
  - Cancer pain [Unknown]
  - Feeling abnormal [Unknown]
  - Diarrhoea [Unknown]
  - Eating disorder [Unknown]

NARRATIVE: CASE EVENT DATE: 2017
